FAERS Safety Report 22612588 (Version 1)
Quarter: 2023Q2

REPORT INFORMATION
  Report Type: Spontaneous
  Country: US (occurrence: None)
  Receive Date: 20230617
  Receipt Date: 20230617
  Transmission Date: 20230721
  Serious: No
  Sender: FDA-Public Use
  Company Number: 2023A136631

PATIENT

DRUGS (2)
  1. BREZTRI [Suspect]
     Active Substance: BUDESONIDE\FORMOTEROL\GLYCOPYRROLATE
     Dosage: 320.0UG UNKNOWN
     Route: 055
  2. ATROVENT [Concomitant]
     Active Substance: IPRATROPIUM BROMIDE

REACTIONS (14)
  - Dyspnoea [Unknown]
  - Asthenia [Unknown]
  - Malaise [Unknown]
  - Fear [Unknown]
  - Hypoacusis [Unknown]
  - Cardiac failure congestive [Unknown]
  - Meniere^s disease [Unknown]
  - Osteosclerosis [Unknown]
  - Osteoporosis [Unknown]
  - Fatigue [Unknown]
  - Device use issue [Unknown]
  - Wrong technique in device usage process [Unknown]
  - Drug dose omission by device [Unknown]
  - Device delivery system issue [Unknown]
